FAERS Safety Report 5708655-6 (Version None)
Quarter: 2008Q2

REPORT INFORMATION
  Report Type: 
  Country: None (occurrence: None)
  Receive Date: 20080414
  Receipt Date: 20080414
  Transmission Date: 20081010
  Serious: Yes (Other)
  Sender: FDA-Public Use
  Company Number: None

PATIENT
  Age: 44 Year
  Sex: Male
  Weight: 77.1115 kg

DRUGS (1)
  1. LEVAQUIN [Suspect]
     Indication: BRONCHITIS
     Dosage: 750MG DAILY PO
     Route: 048
     Dates: start: 20080215, end: 20080216

REACTIONS (14)
  - ANXIETY [None]
  - ASTHENIA [None]
  - CONFUSIONAL STATE [None]
  - DIZZINESS [None]
  - FEELING JITTERY [None]
  - INSOMNIA [None]
  - MUSCLE TIGHTNESS [None]
  - MYALGIA [None]
  - NIGHTMARE [None]
  - PARAESTHESIA [None]
  - SENSORY DISTURBANCE [None]
  - SKIN WARM [None]
  - SLEEP TERROR [None]
  - VIRAL INFECTION [None]
